FAERS Safety Report 8506732 (Version 5)
Quarter: 2013Q2

REPORT INFORMATION
  Report Type: Report from Study
  Country: US (occurrence: US)
  Receive Date: 20120412
  Receipt Date: 20130529
  Transmission Date: 20140414
  Serious: Yes (Hospitalization)
  Sender: FDA-Public Use
  Company Number: US-GENZYME-CAMP-1002193

PATIENT
  Age: 37 Year
  Sex: Female
  Weight: 47.62 kg

DRUGS (6)
  1. ALEMTUZUMAB [Suspect]
     Indication: MULTIPLE SCLEROSIS
     Dosage: 12 MG, QD
     Route: 042
     Dates: start: 20110711, end: 20110711
  2. ALEMTUZUMAB [Suspect]
     Dosage: 12 MG, QD
     Route: 042
     Dates: start: 20110705, end: 20110708
  3. REBIF [Concomitant]
     Indication: MULTIPLE SCLEROSIS
     Dosage: 44 MCG, 3X/W
     Route: 058
     Dates: start: 20090601, end: 20110606
  4. METHYLPREDNISOLONE [Concomitant]
     Indication: MULTIPLE SCLEROSIS
     Dosage: 1 G, QD
     Route: 042
     Dates: start: 20110705, end: 20110707
  5. METHYLPREDNISOLONE [Concomitant]
     Indication: PREMEDICATION
  6. HYDROCODONE [Concomitant]
     Indication: PAIN
     Dosage: 7.5 MG, Q4HR
     Route: 065

REACTIONS (1)
  - Breast cancer [Recovered/Resolved]
